FAERS Safety Report 9124605 (Version 1)
Quarter: 2013Q1

REPORT INFORMATION
  Report Type: Spontaneous
  Country: US (occurrence: US)
  Receive Date: 20130227
  Receipt Date: 20130227
  Transmission Date: 20140127
  Serious: Yes (Hospitalization)
  Sender: FDA-Public Use
  Company Number: US-JNJFOC-20130208419

PATIENT
  Age: 25 Year
  Sex: Male

DRUGS (4)
  1. INVEGA SUSTENNA [Suspect]
     Indication: SCHIZOPHRENIA
     Route: 030
  2. HALDOL DECANOATE [Suspect]
     Indication: SCHIZOPHRENIA
     Route: 030
  3. ZYPREXA [Suspect]
     Indication: SCHIZOPHRENIA
     Route: 065
  4. AN UNKNOWN MEDICATION [Concomitant]
     Indication: PRODUCT USED FOR UNKNOWN INDICATION
     Route: 065

REACTIONS (4)
  - Blood prolactin increased [Unknown]
  - Breast engorgement [Recovered/Resolved]
  - Galactorrhoea [Not Recovered/Not Resolved]
  - Weight increased [Unknown]
